FAERS Safety Report 7242069-5 (Version None)
Quarter: 2011Q1

REPORT INFORMATION
  Report Type: 
  Country: None (occurrence: None)
  Receive Date: 20110124
  Receipt Date: 20110111
  Transmission Date: 20110831
  Serious: Yes (Death, Hospitalization)
  Sender: FDA-Public Use
  Company Number: US-CELGENEUS-163-21880-10112620

PATIENT
  Sex: Female

DRUGS (2)
  1. REVLIMID [Suspect]
     Indication: MULTIPLE MYELOMA
     Route: 048
     Dates: start: 20101107, end: 20101117
  2. REVLIMID [Suspect]
     Route: 048
     Dates: start: 20101119, end: 20101101

REACTIONS (2)
  - MENINGITIS PNEUMOCOCCAL [None]
  - VENOUS THROMBOSIS [None]
